FAERS Safety Report 15741491 (Version 4)
Quarter: 2020Q3

REPORT INFORMATION
  Report Type: Spontaneous
  Country: US (occurrence: US)
  Receive Date: 20181219
  Receipt Date: 20200731
  Transmission Date: 20201102
  Serious: No
  Sender: FDA-Public Use
  Company Number: US-SA-2018SA343419

PATIENT

DRUGS (7)
  1. TAXOTERE [Suspect]
     Active Substance: DOCETAXEL
     Indication: BREAST CANCER STAGE II
     Dosage: 119?120MG, Q3W
     Route: 065
     Dates: start: 20101001, end: 20101001
  2. PARAPLATIN [Concomitant]
     Active Substance: CARBOPLATIN
     Indication: BREAST CANCER STAGE II
     Dosage: UNK
     Route: 065
  3. NEOSAR [Concomitant]
     Active Substance: CYCLOPHOSPHAMIDE
     Indication: BREAST CANCER STAGE II
     Dosage: UNK
     Route: 065
  4. DOXIL [Concomitant]
     Active Substance: DOXORUBICIN HYDROCHLORIDE
     Indication: BREAST CANCER STAGE II
     Dosage: UNK
  5. TAXOTERE [Suspect]
     Active Substance: DOCETAXEL
     Dosage: 119?120MG, Q3W
     Route: 065
     Dates: start: 20110204, end: 20110204
  6. ADRIAMYCIN [Concomitant]
     Active Substance: DOXORUBICIN HYDROCHLORIDE
     Indication: BREAST CANCER STAGE II
     Dosage: UNK
     Route: 065
  7. TAXOL [Concomitant]
     Active Substance: PACLITAXEL
     Indication: BREAST CANCER STAGE II
     Dosage: UNK
     Route: 065

REACTIONS (2)
  - Psychological trauma [Unknown]
  - Emotional distress [Unknown]
